FAERS Safety Report 10482013 (Version 4)
Quarter: 2015Q4

REPORT INFORMATION
  Report Type: Report from Study
  Country: US (occurrence: US)
  Receive Date: 20140929
  Receipt Date: 20151231
  Transmission Date: 20160304
  Serious: Yes (Hospitalization, Other)
  Sender: FDA-Public Use
  Company Number: US-SA-2014SA132408

PATIENT
  Age: 53 Year
  Sex: Male

DRUGS (2)
  1. FABRAZYME [Suspect]
     Active Substance: AGALSIDASE BETA
     Indication: FABRY^S DISEASE
     Route: 041
     Dates: start: 200407
  2. FABRAZYME [Suspect]
     Active Substance: AGALSIDASE BETA
     Indication: FABRY^S DISEASE
     Dosage: FREQUENCY-Q2
     Route: 041
     Dates: end: 2015

REACTIONS (11)
  - Traumatic lung injury [Unknown]
  - Cellulitis [Unknown]
  - Hospitalisation [Unknown]
  - Chest pain [Unknown]
  - Rib fracture [Unknown]
  - Pyrexia [Unknown]
  - Infection [Unknown]
  - Dyspnoea exertional [Unknown]
  - Device related infection [Recovered/Resolved]
  - Central venous catheter removal [Unknown]
  - Pain [Unknown]

NARRATIVE: CASE EVENT DATE: 2014
